FAERS Safety Report 15692666 (Version 1)
Quarter: 2018Q4

REPORT INFORMATION
  Report Type: Report from Study
  Country: None (occurrence: US)
  Receive Date: 20181206
  Receipt Date: 20181206
  Transmission Date: 20190205
  Serious: Yes (Other)
  Sender: FDA-Public Use
  Company Number: US-ABBVIE-18S-163-2573357-00

PATIENT
  Age: 75 Year
  Sex: Male

DRUGS (1)
  1. CREON [Suspect]
     Active Substance: PANCRELIPASE AMYLASE\PANCRELIPASE LIPASE\PANCRELIPASE PROTEASE
     Indication: PRODUCT USED FOR UNKNOWN INDICATION
     Route: 065

REACTIONS (18)
  - Neuroendocrine carcinoma [Unknown]
  - Ectopic gastric mucosa [Unknown]
  - Major depression [Unknown]
  - Oedema peripheral [Unknown]
  - Oesophageal stenosis [Unknown]
  - Essential hypertension [Unknown]
  - Vitamin D deficiency [Unknown]
  - Insomnia [Unknown]
  - Gastric ulcer [Unknown]
  - Barrett^s oesophagus [Unknown]
  - Metastases to bone [Unknown]
  - Diverticulum [Unknown]
  - Hyperlipidaemia [Unknown]
  - Metastases to liver [Unknown]
  - Haemorrhoids [Unknown]
  - Anaemia [Unknown]
  - Duodenal ulcer [Unknown]
  - Diarrhoea [Unknown]

NARRATIVE: CASE EVENT DATE: 2017
